FAERS Safety Report 23436800 (Version 3)
Quarter: 2024Q1

REPORT INFORMATION
  Report Type: Spontaneous
  Country: JP (occurrence: JP)
  Receive Date: 20240124
  Receipt Date: 20240229
  Transmission Date: 20240410
  Serious: Yes (Hospitalization, Other)
  Sender: FDA-Public Use
  Company Number: JP-UCBSA-2023056688

PATIENT
  Sex: Male

DRUGS (3)
  1. BIMZELX [Suspect]
     Active Substance: BIMEKIZUMAB-BKZX
     Indication: Psoriasis
     Dosage: 320 MILLIGRAM, EV 4 WEEKS
     Route: 058
     Dates: start: 20221027, end: 20221220
  2. BIMZELX [Suspect]
     Active Substance: BIMEKIZUMAB-BKZX
     Dosage: UNK
     Route: 058
     Dates: start: 20231023
  3. SOTYKTU [Concomitant]
     Active Substance: DEUCRAVACITINIB
     Indication: Psoriasis
     Dosage: UNK

REACTIONS (6)
  - Hospitalisation [Unknown]
  - Oesophageal ulcer [Unknown]
  - Gastritis erosive [Unknown]
  - Diarrhoea [Recovered/Resolved]
  - Large intestine polyp [Unknown]
  - Diverticulum [Unknown]

NARRATIVE: CASE EVENT DATE: 20221029
